FAERS Safety Report 6313606-X (Version None)
Quarter: 2009Q3

REPORT INFORMATION
  Report Type: 
  Country: None (occurrence: None)
  Receive Date: 20090814
  Receipt Date: 20090814
  Transmission Date: 20100115
  Serious: Yes (Life-Threatening, Hospitalization)
  Sender: FDA-Public Use
  Company Number: None

PATIENT
  Sex: Male
  Weight: 89.8122 kg

DRUGS (1)
  1. BEVACIZUMAB - 10 MG/KG [Suspect]
     Indication: NON-SMALL CELL LUNG CANCER
     Dosage: 875 MG IV Q 2 WEEKS
     Route: 042
     Dates: start: 20090506, end: 20090729

REACTIONS (4)
  - ASTHENIA [None]
  - COLITIS ISCHAEMIC [None]
  - GENERAL PHYSICAL HEALTH DETERIORATION [None]
  - HAEMATOCHEZIA [None]
